FAERS Safety Report 7074133-8 (Version None)
Quarter: 2010Q4

REPORT INFORMATION
  Report Type: 
  Country: None (occurrence: None)
  Receive Date: 20101029
  Receipt Date: 20101021
  Transmission Date: 20110411
  Serious: Yes (Hospitalization, Other)
  Sender: FDA-Public Use
  Company Number: US-PFIZER INC-2010117521

PATIENT
  Sex: Female
  Weight: 78.005 kg

DRUGS (6)
  1. LYRICA [Suspect]
     Indication: FIBROMYALGIA
     Dosage: UNK
     Route: 048
     Dates: end: 20100801
  2. CELEBREX [Suspect]
     Indication: FIBROMYALGIA
     Dosage: UNK
     Dates: start: 20010101
  3. SIMVASTATIN [Suspect]
     Indication: BLOOD CHOLESTEROL INCREASED
     Dosage: UNK
  4. NEXIUM [Concomitant]
     Dosage: 40 MG, 1X/DAY
  5. OXYCONTIN [Concomitant]
     Dosage: 20 MG, 3X/DAY
  6. XANAX [Concomitant]
     Indication: ANXIETY
     Dosage: UNK

REACTIONS (13)
  - ARTERIAL OCCLUSIVE DISEASE [None]
  - BLOOD CHOLESTEROL ABNORMAL [None]
  - BLOOD GLUCOSE INCREASED [None]
  - DRUG INEFFECTIVE [None]
  - DYSURIA [None]
  - HYPERTENSION [None]
  - INSOMNIA [None]
  - MUSCULOSKELETAL DISCOMFORT [None]
  - NEURALGIA [None]
  - OEDEMA PERIPHERAL [None]
  - RENAL DISORDER [None]
  - SWELLING FACE [None]
  - WEIGHT INCREASED [None]
